FAERS Safety Report 13291976 (Version 1)
Quarter: 2017Q1

REPORT INFORMATION
  Report Type: Spontaneous
  Country: US (occurrence: US)
  Receive Date: 20170302
  Receipt Date: 20170302
  Transmission Date: 20170428
  Serious: Yes (Hospitalization)
  Sender: FDA-Public Use
  Company Number: None

PATIENT
  Age: 74 Year
  Sex: Female
  Weight: 74.5 kg

DRUGS (1)
  1. ENOXAPARIN (GENERIC) [Suspect]
     Active Substance: ENOXAPARIN
     Indication: PROSTHESIS USER
     Dosage: DOSE - ML
     Route: 058
     Dates: start: 20170203, end: 20170210

REACTIONS (3)
  - Colitis microscopic [None]
  - Oesophageal ulcer [None]
  - Gastrointestinal haemorrhage [None]

NARRATIVE: CASE EVENT DATE: 20170210
